FAERS Safety Report 7797409-5 (Version None)
Quarter: 2011Q4

REPORT INFORMATION
  Report Type: 
  Country: None (occurrence: None)
  Receive Date: 20111003
  Receipt Date: 20110926
  Transmission Date: 20120403
  Serious: Yes (Hospitalization)
  Sender: FDA-Public Use
  Company Number: GER/UKI/10/0010935

PATIENT
  Age: 36 Year
  Sex: Female

DRUGS (3)
  1. CLOZARIL [Suspect]
     Indication: SCHIZOPHRENIA
     Dosage: 50 MG, 1 IN 1 D, ORAL
     Route: 048
     Dates: end: 20031215
  2. RISPERIDONE [Suspect]
     Indication: PRODUCT USED FOR UNKNOWN INDICATION
  3. AMISULPRIDE (AMISULPRIDE) [Suspect]
     Indication: PRODUCT USED FOR UNKNOWN INDICATION

REACTIONS (7)
  - TACHYCARDIA [None]
  - VENTRICULAR EXTRASYSTOLES [None]
  - DYSPNOEA [None]
  - TREATMENT NONCOMPLIANCE [None]
  - ELECTROCARDIOGRAM QT PROLONGED [None]
  - MENTAL DISORDER [None]
  - CONDITION AGGRAVATED [None]
